FAERS Safety Report 9518817 (Version 1)
Quarter: 2013Q3

REPORT INFORMATION
  Report Type: Report from Study
  Country: FR (occurrence: FR)
  Receive Date: 20130912
  Receipt Date: 20130912
  Transmission Date: 20140515
  Serious: Yes (Hospitalization)
  Sender: FDA-Public Use
  Company Number: FR-009507513-1309FRA002117

PATIENT
  Age: 49 Year
  Sex: Male

DRUGS (7)
  1. MK-8908 [Suspect]
     Indication: CHRONIC HEPATITIS C
     Dosage: 1200 MG, UNK
     Dates: start: 20130506
  2. PEGINTERFERON ALFA-2A [Suspect]
     Indication: CHRONIC HEPATITIS C
     Dosage: 180 MICROGRAM, QW
     Dates: start: 20130506
  3. ASUNAPREVIR [Suspect]
     Indication: CHRONIC HEPATITIS C
     Dosage: 200 MG, UNK
     Dates: start: 20130603
  4. DACLATASVIR [Suspect]
     Indication: CHRONIC HEPATITIS C
     Dosage: 60 MG, UNK
     Dates: start: 20130603
  5. EPIVIR [Concomitant]
     Dosage: UNK
     Dates: start: 20090710
  6. VIREAD [Concomitant]
     Dosage: UNK
     Dates: start: 20090710
  7. ISENTRESS [Concomitant]
     Dosage: UNK
     Dates: start: 20130221

REACTIONS (1)
  - Asthenia [Not Recovered/Not Resolved]
